FAERS Safety Report 17161483 (Version 2)
Quarter: 2019Q4

REPORT INFORMATION
  Report Type: Report from Study
  Country: None (occurrence: US)
  Receive Date: 20191216
  Receipt Date: 20191231
  Transmission Date: 20200122
  Serious: Yes (Hospitalization, Other)
  Sender: FDA-Public Use
  Company Number: US-ABBVIE-19K-163-2961886-00

PATIENT
  Sex: Male

DRUGS (6)
  1. HCTZ [Concomitant]
     Active Substance: HYDROCHLOROTHIAZIDE
     Indication: BLOOD PRESSURE MEASUREMENT
  2. HUMIRA [Suspect]
     Active Substance: ADALIMUMAB
     Indication: CROHN^S DISEASE
     Route: 058
  3. FOSINOPRIL [Concomitant]
     Active Substance: FOSINOPRIL
     Indication: BLOOD PRESSURE MEASUREMENT
  4. VITAMINE D [Concomitant]
     Active Substance: CHOLECALCIFEROL
     Indication: CROHN^S DISEASE
  5. VITAMINE C [Concomitant]
     Active Substance: ASCORBIC ACID
     Indication: CROHN^S DISEASE
  6. FOLIC ACID. [Concomitant]
     Active Substance: FOLIC ACID
     Indication: CROHN^S DISEASE

REACTIONS (2)
  - Basal cell carcinoma [Recovering/Resolving]
  - Epistaxis [Recovering/Resolving]

NARRATIVE: CASE EVENT DATE: 2018
